FAERS Safety Report 12737201 (Version 1)
Quarter: 2016Q3

REPORT INFORMATION
  Report Type: Spontaneous
  Country: CN (occurrence: CN)
  Receive Date: 20160913
  Receipt Date: 20160913
  Transmission Date: 20161109
  Serious: Yes (Other)
  Sender: FDA-Public Use
  Company Number: CN-ASTRAZENECA-2016SE96536

PATIENT
  Age: 87 Year
  Sex: Male
  Weight: 65 kg

DRUGS (1)
  1. BUDESONIDE. [Suspect]
     Active Substance: BUDESONIDE
     Indication: RHINORRHOEA
     Route: 045
     Dates: start: 20160116, end: 20160118

REACTIONS (4)
  - Chest pain [Recovered/Resolved]
  - Chest discomfort [Recovered/Resolved]
  - Electrocardiogram ST segment depression [Recovering/Resolving]
  - Flushing [Unknown]

NARRATIVE: CASE EVENT DATE: 20160118
